FAERS Safety Report 16238884 (Version 2)
Quarter: 2019Q2

REPORT INFORMATION
  Report Type: Spontaneous
  Country: US (occurrence: US)
  Receive Date: 20190425
  Receipt Date: 20190627
  Transmission Date: 20190711
  Serious: No
  Sender: FDA-Public Use
  Company Number: US-SA-2019SA109597

PATIENT
  Age: 47 Year
  Sex: Female

DRUGS (1)
  1. CEREZYME [Suspect]
     Active Substance: IMIGLUCERASE
     Indication: GAUCHER^S DISEASE
     Dosage: 3400 UNITS, QOW
     Route: 041
     Dates: start: 20100405

REACTIONS (4)
  - Flushing [Unknown]
  - Dysphagia [Unknown]
  - Erythema [Unknown]
  - Product dose omission [Unknown]

NARRATIVE: CASE EVENT DATE: 20190403
